FAERS Safety Report 4917376-9 (Version None)
Quarter: 2006Q1

REPORT INFORMATION
  Report Type: 
  Country: None (occurrence: None)
  Receive Date: 20060221
  Receipt Date: 20060215
  Transmission Date: 20060701
  Serious: Yes (Congenital Anomaly)
  Sender: FDA-Public Use
  Company Number: US-GLAXOSMITHKLINE-A0594051A

PATIENT
  Age: 39 Year
  Sex: Female

DRUGS (2)
  1. COMBIVIR [Suspect]
     Indication: HIV INFECTION
     Dates: start: 20051017
  2. VIRACEPT [Suspect]
     Indication: HIV INFECTION
     Dates: start: 20051017

REACTIONS (1)
  - POLYDACTYLY [None]
